FAERS Safety Report 5130989-7 (Version None)
Quarter: 2006Q4

REPORT INFORMATION
  Report Type: 
  Country: None (occurrence: None)
  Receive Date: 20060829
  Receipt Date: 20060622
  Transmission Date: 20070319
  Serious: Yes (Other)
  Sender: FDA-Public Use
  Company Number: PHEH2006US08183

PATIENT

DRUGS (1)
  1. EXJADE [Suspect]
     Dosage: 20 MG, QD, ORAL
     Route: 048

REACTIONS (1)
  - HEPATIC ENZYME INCREASED [None]
